FAERS Safety Report 13445531 (Version 1)
Quarter: 2017Q2

REPORT INFORMATION
  Report Type: Spontaneous
  Country: US (occurrence: US)
  Receive Date: 20170415
  Receipt Date: 20170415
  Transmission Date: 20170830
  Serious: No
  Sender: FDA-Public Use
  Company Number: US-BION-005812

PATIENT
  Age: 72 Year
  Sex: Male
  Weight: 102.51 kg

DRUGS (10)
  1. TRICOR [Concomitant]
     Active Substance: FENOFIBRATE
  2. FINASTERIDE. [Concomitant]
     Active Substance: FINASTERIDE
  3. METFORMIN [Concomitant]
     Active Substance: METFORMIN HYDROCHLORIDE
  4. VICTOZA [Concomitant]
     Active Substance: LIRAGLUTIDE
  5. GLIMEPIRIDE. [Concomitant]
     Active Substance: GLIMEPIRIDE
  6. BAYER ASPIRIN [Concomitant]
     Active Substance: ASPIRIN
  7. MIDODRINE [Concomitant]
     Active Substance: MIDODRINE
  8. PRAVASTATIN. [Concomitant]
     Active Substance: PRAVASTATIN
  9. BACTROBAN [Concomitant]
     Active Substance: MUPIROCIN\MUPIROCIN CALCIUM
  10. ALEVE [Suspect]
     Active Substance: NAPROXEN SODIUM
     Indication: PAIN PROPHYLAXIS
     Dosage: LIQUID GELS
     Route: 048
     Dates: start: 201601

REACTIONS (2)
  - Inappropriate schedule of drug administration [Not Recovered/Not Resolved]
  - Incorrect drug administration duration [Not Recovered/Not Resolved]

NARRATIVE: CASE EVENT DATE: 20160120
